FAERS Safety Report 20617910 (Version 3)
Quarter: 2023Q2

REPORT INFORMATION
  Report Type: Spontaneous
  Country: US (occurrence: US)
  Receive Date: 20220321
  Receipt Date: 20230410
  Transmission Date: 20230721
  Serious: Yes (Hospitalization, Other)
  Sender: FDA-Public Use
  Company Number: US-PFIZER INC-202200310119

PATIENT
  Age: 73 Year
  Sex: Male

DRUGS (1)
  1. XELJANZ XR [Suspect]
     Active Substance: TOFACITINIB CITRATE
     Dosage: UNK
     Dates: start: 2018

REACTIONS (5)
  - Fall [Unknown]
  - Injury [Unknown]
  - Cardiac disorder [Unknown]
  - Therapeutic product effect decreased [Unknown]
  - Arthritis [Unknown]
